FAERS Safety Report 19458930 (Version 1)
Quarter: 2021Q2

REPORT INFORMATION
  Report Type: Spontaneous
  Country: US (occurrence: US)
  Receive Date: 20210624
  Receipt Date: 20210624
  Transmission Date: 20210717
  Serious: Yes (Hospitalization, Other)
  Sender: FDA-Public Use
  Company Number: US-ALVOGEN-2021-ALVOGEN-117119

PATIENT
  Age: 2 Year
  Sex: Male

DRUGS (1)
  1. FLECAINIDE [Suspect]
     Active Substance: FLECAINIDE
     Indication: PRODUCT USED FOR UNKNOWN INDICATION
     Dosage: 400MG INGESTION 45 MINUTES PRIOR TO PRESENTATION
     Route: 048

REACTIONS (7)
  - Tachycardia [Recovered/Resolved]
  - Mental status changes [Recovered/Resolved]
  - Overdose [Unknown]
  - Bradycardia [Recovered/Resolved]
  - Toxicity to various agents [Recovered/Resolved]
  - Hypotension [Recovered/Resolved]
  - Seizure like phenomena [Recovered/Resolved]
